FAERS Safety Report 8323416-X (Version None)
Quarter: 2012Q2

REPORT INFORMATION
  Report Type: 
  Country: None (occurrence: None)
  Receive Date: 20120430
  Receipt Date: 20120412
  Transmission Date: 20120825
  Serious: Yes (Other)
  Sender: FDA-Public Use
  Company Number: PHHY2012US035861

PATIENT
  Age: 64 Year
  Sex: Male

DRUGS (3)
  1. CYCLOSPORINE [Suspect]
     Indication: LIVER TRANSPLANT
     Dosage: UNK UKN, BID
  2. SIROLIMUS [Concomitant]
     Indication: LIVER TRANSPLANT
     Dosage: DIALY
  3. MYCOPHENOLIC ACID [Suspect]
     Indication: LIVER TRANSPLANT
     Dosage: UNK UKN, UNK

REACTIONS (4)
  - HAEMORRHAGE INTRACRANIAL [None]
  - CLOSTRIDIAL INFECTION [None]
  - POSTERIOR REVERSIBLE ENCEPHALOPATHY SYNDROME [None]
  - APHASIA [None]
